FAERS Safety Report 4821324-X (Version None)
Quarter: 2005Q4

REPORT INFORMATION
  Report Type: 
  Country: None (occurrence: None)
  Receive Date: 20051107
  Receipt Date: 20050819
  Transmission Date: 20060501
  Serious: No
  Sender: FDA-Public Use
  Company Number: US-GLAXOSMITHKLINE-A0570926A

PATIENT
  Sex: Female

DRUGS (10)
  1. AVANDAMET [Suspect]
     Route: 048
  2. AVANDIA [Suspect]
     Route: 048
  3. DIOVAN [Concomitant]
  4. LIPITOR [Concomitant]
  5. PROTONIX [Concomitant]
  6. VITAMINS [Concomitant]
  7. FISH OIL [Concomitant]
  8. ESTROVEN [Concomitant]
  9. ASPIRIN [Concomitant]
  10. METFORMIN HCL [Concomitant]

REACTIONS (4)
  - BLOOD GLUCOSE INCREASED [None]
  - DIARRHOEA [None]
  - FLATULENCE [None]
  - JOINT SWELLING [None]
